FAERS Safety Report 19951006 (Version 1)
Quarter: 2021Q4

REPORT INFORMATION
  Report Type: Spontaneous
  Country: GB (occurrence: GB)
  Receive Date: 20211014
  Receipt Date: 20211014
  Transmission Date: 20220303
  Serious: Yes (Other)
  Sender: FDA-Public Use
  Company Number: GB-MHRA-EMIS-9885-FFBDCA44-2AC5-4F49-A2E2-DA4A1AA08D94

PATIENT
  Age: 55 Year
  Sex: Female
  Weight: 72.6 kg

DRUGS (5)
  1. CITALOPRAM [Suspect]
     Active Substance: CITALOPRAM HYDROBROMIDE
     Indication: Product used for unknown indication
     Dosage: ONE TO BE TAKEN EACH DAY ALONGSIDE THE 20MG. TOTAL DOSE IS 30MG DAILY.
     Route: 065
     Dates: start: 20210906
  2. LANSOPRAZOLE [Concomitant]
     Active Substance: LANSOPRAZOLE
     Indication: Product used for unknown indication
     Dosage: ONE TO BE TAKEN EACH MORNING
     Route: 065
     Dates: start: 20210809
  3. MOMETASONE [Concomitant]
     Active Substance: MOMETASONE
     Indication: Cough
     Dosage: TWO SPRAYS TO BE USED IN EACH NOSTRIL TWICE A DAY, THEN REDUCE WHEN SYMPTOMS UNDER CONTROL
     Route: 065
     Dates: start: 20210726, end: 20210824
  4. MOMETASONE [Concomitant]
     Active Substance: MOMETASONE
     Dosage: TWO SPRAYS TO BE USED IN EACH NOSTRIL TWICE A DAY, THEN REDUCE WHEN SYMPTOMS UNDER CONTROL
     Route: 065
     Dates: start: 20210908
  5. ALBUTEROL [Concomitant]
     Active Substance: ALBUTEROL
     Indication: Cough
     Dosage: 2 PUFFS AS REQUIRED
     Route: 065
     Dates: start: 20210908

REACTIONS (1)
  - Colitis microscopic [Unknown]
